FAERS Safety Report 15886153 (Version 2)
Quarter: 2020Q1

REPORT INFORMATION
  Report Type: Spontaneous
  Country: GB (occurrence: GB)
  Receive Date: 20190129
  Receipt Date: 20200131
  Transmission Date: 20200409
  Serious: Yes (Other)
  Sender: FDA-Public Use
  Company Number: GB-PFIZER INC-2019032519

PATIENT
  Age: 41 Year
  Sex: Female
  Weight: 103 kg

DRUGS (5)
  1. SERTRALINE HCL [Suspect]
     Active Substance: SERTRALINE HYDROCHLORIDE
     Dosage: 50 MG, DAILY
     Route: 048
     Dates: start: 20180217
  2. SERTRALINE HCL [Suspect]
     Active Substance: SERTRALINE HYDROCHLORIDE
     Dosage: 100 MG, DAILY
     Route: 048
     Dates: start: 20190204
  3. SERTRALINE HCL [Suspect]
     Active Substance: SERTRALINE HYDROCHLORIDE
     Indication: DEPRESSION
     Dosage: 150 MG, UNK
     Route: 048
     Dates: start: 20180104, end: 2018
  4. COLECALCIFEROL [Concomitant]
     Active Substance: CHOLECALCIFEROL
     Dosage: 2000 IU, DAILY (TAKE FOR 3 MONTHS)
  5. OMEPRAZOLE. [Concomitant]
     Active Substance: OMEPRAZOLE
     Dosage: 20 MG, DAILY
     Dates: start: 20190204

REACTIONS (19)
  - Depression [Recovered/Resolved]
  - Fatigue [Unknown]
  - Asthenia [Unknown]
  - Drug ineffective [Unknown]
  - Gamma-glutamyltransferase increased [Unknown]
  - Abnormal loss of weight [Unknown]
  - Malaise [Recovered/Resolved]
  - Arthralgia [Unknown]
  - Depressed mood [Recovered/Resolved]
  - Decreased eye contact [Unknown]
  - Tenderness [Unknown]
  - Apathy [Unknown]
  - Vitamin D decreased [Unknown]
  - Musculoskeletal discomfort [Not Recovered/Not Resolved]
  - Back pain [Unknown]
  - Musculoskeletal stiffness [Unknown]
  - Tearfulness [Unknown]
  - Musculoskeletal pain [Unknown]
  - Myalgia [Not Recovered/Not Resolved]

NARRATIVE: CASE EVENT DATE: 20181114
